FAERS Safety Report 9548783 (Version 1)
Quarter: 2013Q3

REPORT INFORMATION
  Report Type: Spontaneous
  Country: GB (occurrence: None)
  Receive Date: 20130919
  Receipt Date: 20130919
  Transmission Date: 20140515
  Serious: Yes (Hospitalization)
  Sender: FDA-Public Use
  Company Number: USA/UKI/13/0034550

PATIENT
  Age: 42 Year
  Sex: Male

DRUGS (4)
  1. OLANZAPINE [Suspect]
     Indication: PRODUCT USED FOR UNKNOWN INDICATION
     Dosage: 150MG, 1 IN 1 TOTAL, INTRAVENOUS
  2. PROPOFOL [Suspect]
     Indication: SEDATIVE THERAPY
     Dosage: 120 MG, 1 IN 1 HR, INTRAVENOUS
     Route: 042
  3. RAMIPRIL [Suspect]
     Indication: PRODUCT USED FOR UNKNOWN INDICATION
     Dosage: 50MG, 1 IN 1 TOTAL,
  4. CITALOPRAM [Suspect]
     Indication: PRODUCT USED FOR UNKNOWN INDICATION

REACTIONS (3)
  - Diabetes insipidus [None]
  - Suicide attempt [None]
  - Intentional overdose [None]
